FAERS Safety Report 14769555 (Version 5)
Quarter: 2019Q4

REPORT INFORMATION
  Report Type: Spontaneous
  Country: CA (occurrence: CA)
  Receive Date: 20180417
  Receipt Date: 20191223
  Transmission Date: 20200122
  Serious: Yes (Other)
  Sender: FDA-Public Use
  Company Number: CA-CELLTRION INC.-2017CA016332

PATIENT

DRUGS (8)
  1. INFLECTRA [Suspect]
     Active Substance: INFLIXIMAB-DYYB
     Dosage: 5 MG/KG, WEEKS 2, 6, THEN EVERY 8 WEEKS
     Route: 042
     Dates: start: 20171117
  2. PREDNISONE. [Concomitant]
     Active Substance: PREDNISONE
     Dosage: UNK
     Route: 065
     Dates: start: 201706
  3. INFLECTRA [Suspect]
     Active Substance: INFLIXIMAB-DYYB
     Dosage: 5 MG/KG WEEKS 2,6 THEN Q (EVERY) 8 WEEKS
     Route: 042
     Dates: start: 20190503
  4. INFLECTRA [Suspect]
     Active Substance: INFLIXIMAB-DYYB
     Dosage: 236.5 MG, WEEKS 2, 6, THEN EVERY 8 WEEKS
     Route: 042
     Dates: start: 20180208
  5. INFLECTRA [Suspect]
     Active Substance: INFLIXIMAB-DYYB
     Dosage: 5 MG/KG WEEKS 2,6 THEN Q (EVERY) 8 WEEKS
     Route: 042
     Dates: start: 20191018
  6. INFLECTRA [Suspect]
     Active Substance: INFLIXIMAB-DYYB
     Indication: CROHN^S DISEASE
     Dosage: UNK
     Route: 065
     Dates: start: 20171103
  7. INFLECTRA [Suspect]
     Active Substance: INFLIXIMAB-DYYB
     Dosage: 5 MG/KG WEEKS 2,6 THEN Q (EVERY) 8 WEEKS
     Route: 042
     Dates: start: 20190628
  8. INFLECTRA [Suspect]
     Active Substance: INFLIXIMAB-DYYB
     Dosage: 5 MG/KG WEEKS 2,6 THEN Q (EVERY) 8 WEEKS
     Route: 042
     Dates: start: 20191210

REACTIONS (8)
  - Appendix disorder [Unknown]
  - Nausea [Recovered/Resolved]
  - Pyrexia [Not Recovered/Not Resolved]
  - Chills [Unknown]
  - Oropharyngeal pain [Unknown]
  - Dizziness [Unknown]
  - Wound infection [Unknown]
  - Hypotension [Unknown]

NARRATIVE: CASE EVENT DATE: 20171103
